FAERS Safety Report 20317503 (Version 3)
Quarter: 2022Q2

REPORT INFORMATION
  Report Type: Spontaneous
  Country: US (occurrence: US)
  Receive Date: 20220110
  Receipt Date: 20220401
  Transmission Date: 20220721
  Serious: Yes (Other)
  Sender: FDA-Public Use
  Company Number: US-Hikma Pharmaceuticals USA Inc.-US-H14001-21-05685

PATIENT
  Age: 40 Year
  Sex: Female

DRUGS (2)
  1. MEGESTROL [Suspect]
     Active Substance: MEGESTROL
     Indication: Cervix carcinoma
     Dosage: UNKNOWN
     Route: 065
  2. MEGESTROL [Suspect]
     Active Substance: MEGESTROL
     Indication: Endometriosis

REACTIONS (2)
  - Meningioma [Recovered/Resolved]
  - Secondary adrenocortical insufficiency [Unknown]
